FAERS Safety Report 6150836-4 (Version None)
Quarter: 2009Q2

REPORT INFORMATION
  Report Type: 
  Country: None (occurrence: None)
  Receive Date: 20090408
  Receipt Date: 20090326
  Transmission Date: 20091009
  Serious: Yes (Hospitalization)
  Sender: FDA-Public Use
  Company Number: 2008AL005289

PATIENT
  Age: 60 Year
  Sex: Female
  Weight: 61.2356 kg

DRUGS (41)
  1. DIGOXIN [Suspect]
     Indication: CARDIAC FAILURE CONGESTIVE
     Dosage: 0.25MG, DAILY, PO, 0.125MG, DAILY
     Route: 048
     Dates: start: 20070101, end: 20080101
  2. DIGOXIN [Suspect]
     Indication: CARDIAC FAILURE CONGESTIVE
     Dosage: 0.25MG, DAILY, PO, 0.125MG, DAILY
     Route: 048
     Dates: start: 20080730
  3. GLUCOVANCE [Concomitant]
  4. ACTOS [Concomitant]
  5. PREVACID [Concomitant]
  6. ISORDIL [Concomitant]
  7. METFORMIN HCL [Concomitant]
  8. POTASSIUM CHLORIDE [Concomitant]
  9. ADVAIR HFA [Concomitant]
  10. XOPENEX [Concomitant]
  11. SPIRIVA [Concomitant]
  12. COREG [Concomitant]
  13. LIPITOR [Concomitant]
  14. ASPIRIN [Concomitant]
  15. KLOR-CON [Concomitant]
  16. ALDACTONE [Concomitant]
  17. COUMADIN [Concomitant]
  18. MAGNESIUM SULFATE [Concomitant]
  19. ESTRADIOL [Concomitant]
  20. FUROSEMIDE [Concomitant]
  21. ALBUTEROL [Concomitant]
  22. METROGEL [Concomitant]
  23. PREDNISONE TAB [Concomitant]
  24. TRICOR [Concomitant]
  25. FLUCONAZOLE [Concomitant]
  26. VYTORIN [Concomitant]
  27. CHOLESTYRAM [Concomitant]
  28. CEFUROXIME [Concomitant]
  29. LEVAQUIN [Concomitant]
  30. TOPROL-XL [Concomitant]
  31. AVAPRO [Concomitant]
  32. CLOTRIMAZOLE [Concomitant]
  33. AMOXICILLIN [Concomitant]
  34. METOPROLOL TARTRATE [Concomitant]
  35. TAMIFLU [Concomitant]
  36. AVELOX [Concomitant]
  37. PACERONE [Concomitant]
  38. INSULIN [Concomitant]
  39. SPIRONOLACTONE [Concomitant]
  40. BUMETANIDE [Concomitant]
  41. CAPTOPRIL [Concomitant]

REACTIONS (14)
  - AORTIC STENOSIS [None]
  - ATRIOVENTRICULAR BLOCK FIRST DEGREE [None]
  - CARDIAC FAILURE CONGESTIVE [None]
  - DIZZINESS POSTURAL [None]
  - HYPERGLYCAEMIA [None]
  - HYPONATRAEMIA [None]
  - MITRAL VALVE INCOMPETENCE [None]
  - MYOCARDIAL INFARCTION [None]
  - PRESYNCOPE [None]
  - RESPIRATORY DISTRESS [None]
  - SUPRAVENTRICULAR EXTRASYSTOLES [None]
  - VENTRICULAR ARRHYTHMIA [None]
  - VENTRICULAR TACHYCARDIA [None]
  - WEIGHT INCREASED [None]
